FAERS Safety Report 7738735-5 (Version None)
Quarter: 2011Q3

REPORT INFORMATION
  Report Type: 
  Country: None (occurrence: None)
  Receive Date: 20110908
  Receipt Date: 20110901
  Transmission Date: 20111222
  Serious: No
  Sender: FDA-Public Use
  Company Number: US-PFIZER INC-2011204909

PATIENT
  Sex: Female
  Weight: 79.365 kg

DRUGS (5)
  1. PENICILLIN [Concomitant]
     Indication: TOOTHACHE
     Dosage: UNK, AS NEEDED
  2. LIPITOR [Suspect]
     Indication: MYOCARDIAL INFARCTION
     Dosage: 20 MG, 1X/DAY
     Route: 048
     Dates: start: 20030313, end: 20110101
  3. ASPIRIN [Concomitant]
     Indication: MYOCARDIAL INFARCTION
     Dosage: 325 MG, 1X/DAY
  4. LIPITOR [Suspect]
     Dosage: 40 MG, 1X/DAY
     Route: 048
     Dates: start: 20110101, end: 20110801
  5. METOPROLOL [Concomitant]
     Indication: MYOCARDIAL INFARCTION
     Dosage: UNK

REACTIONS (1)
  - BLOOD TRIGLYCERIDES INCREASED [None]
